FAERS Safety Report 7120494-0 (Version None)
Quarter: 2010Q4

REPORT INFORMATION
  Report Type: 
  Country: None (occurrence: None)
  Receive Date: 20101124
  Receipt Date: 20101112
  Transmission Date: 20110411
  Serious: Yes (Life-Threatening)
  Sender: FDA-Public Use
  Company Number: US-RANBAXY-2010US-39466

PATIENT

DRUGS (2)
  1. ISOPTIN SR [Suspect]
     Indication: HYPERTENSION
     Dosage: 180 MG, QD
     Route: 048
     Dates: start: 20091025, end: 20091109
  2. ATENOLOL [Concomitant]
     Indication: PRODUCT USED FOR UNKNOWN INDICATION
     Dosage: 100 (1/2 TABLET)
     Route: 065

REACTIONS (3)
  - ABDOMINAL PAIN UPPER [None]
  - PALPITATIONS [None]
  - SYNCOPE [None]
